FAERS Safety Report 23958742 (Version 2)
Quarter: 2024Q2

REPORT INFORMATION
  Report Type: Spontaneous
  Country: CA (occurrence: CA)
  Receive Date: 20240610
  Receipt Date: 20240625
  Transmission Date: 20240716
  Serious: Yes (Other)
  Sender: FDA-Public Use
  Company Number: CA-TEVA-VS-3202630

PATIENT
  Age: 45 Year
  Sex: Female

DRUGS (7)
  1. ATORVASTATIN [Suspect]
     Active Substance: ATORVASTATIN
     Indication: Type IIa hyperlipidaemia
     Dosage: RECEIVED AT HIGH INTENSITY UP TO 80MG
     Route: 065
     Dates: start: 200007
  2. LOMITAPIDE [Suspect]
     Active Substance: LOMITAPIDE
     Indication: Type IIa hyperlipidaemia
     Dosage: DOSE INCREASED, OVER THE NEXT YEAR
     Route: 065
  3. LOMITAPIDE [Suspect]
     Active Substance: LOMITAPIDE
     Indication: Type IIa hyperlipidaemia
     Route: 065
     Dates: start: 200911
  4. EVINACUMAB [Suspect]
     Active Substance: EVINACUMAB
     Indication: Type IIa hyperlipidaemia
     Route: 042
  5. EVINACUMAB [Suspect]
     Active Substance: EVINACUMAB
     Indication: Type IIa hyperlipidaemia
     Dosage: RECEIVED AT 250-450MG
     Route: 058
     Dates: start: 200911
  6. ROSUVASTATIN [Suspect]
     Active Substance: ROSUVASTATIN
     Indication: Type IIa hyperlipidaemia
     Dosage: RECEIVED UP TO 40MG
     Route: 065
     Dates: start: 200007
  7. EZETIMIBE [Suspect]
     Active Substance: EZETIMIBE
     Indication: Type IIa hyperlipidaemia
     Dosage: RECEIVED UP TO 10MG
     Route: 065
     Dates: start: 200007

REACTIONS (4)
  - Hepatic steatosis [Recovering/Resolving]
  - Nausea [Unknown]
  - Diarrhoea [Unknown]
  - International normalised ratio increased [Unknown]

NARRATIVE: CASE EVENT DATE: 20130201
